FAERS Safety Report 24743323 (Version 1)
Quarter: 2024Q4

REPORT INFORMATION
  Report Type: Spontaneous
  Country: US (occurrence: None)
  Receive Date: 20241216
  Receipt Date: 20241216
  Transmission Date: 20250115
  Serious: Yes (Other)
  Sender: Public
  Company Number: None

PATIENT
  Age: 72 Year
  Sex: Female
  Weight: 117.45 kg

DRUGS (10)
  1. CIPROFLOXACIN [Suspect]
     Active Substance: CIPROFLOXACIN
     Indication: Urinary tract infection
     Dosage: 14 TABLETS EVERY 12 HOURS ORAL
     Route: 048
     Dates: start: 20241017, end: 20241019
  2. Atenolol, [Concomitant]
  3. Losartan. [Concomitant]
  4. SYNTHROID [Concomitant]
     Active Substance: LEVOTHYROXINE SODIUM
  5. ALBUTEROL [Concomitant]
     Active Substance: ALBUTEROL
  6. Vit C, [Concomitant]
  7. Vit E, [Concomitant]
  8. VIT 3D, [Concomitant]
  9. Coq10, [Concomitant]
  10. KRILL OIL [Concomitant]
     Active Substance: DIETARY SUPPLEMENT\KRILL OIL

REACTIONS (2)
  - Muscle spasms [None]
  - Product quality issue [None]

NARRATIVE: CASE EVENT DATE: 20241017
